FAERS Safety Report 8134792-5 (Version None)
Quarter: 2012Q1

REPORT INFORMATION
  Report Type: 
  Country: None (occurrence: None)
  Receive Date: 20120214
  Receipt Date: 20120208
  Transmission Date: 20120608
  Serious: Yes (Other)
  Sender: FDA-Public Use
  Company Number: US-AMGEN-USASP2012008852

PATIENT
  Age: 51 Year
  Sex: Female

DRUGS (1)
  1. EPOGEN [Suspect]
     Indication: NEPHROGENIC ANAEMIA
     Dosage: 12000 IU, 3 TIMES/WK
     Route: 042
     Dates: start: 20030101

REACTIONS (2)
  - ANAEMIA [None]
  - THERAPEUTIC RESPONSE DECREASED [None]
